FAERS Safety Report 6635107-1 (Version None)
Quarter: 2010Q1

REPORT INFORMATION
  Report Type: 
  Country: None (occurrence: None)
  Receive Date: 20100315
  Receipt Date: 20100303
  Transmission Date: 20100710
  Serious: Yes (Other)
  Sender: FDA-Public Use
  Company Number: PHHY2010CA13127

PATIENT
  Sex: Female

DRUGS (1)
  1. SANDOSTATIN [Suspect]
     Indication: IMPAIRED GASTRIC EMPTYING
     Dosage: 20 MG, QMO
     Route: 030
     Dates: start: 20070402

REACTIONS (1)
  - HEPATIC CYST [None]
